FAERS Safety Report 10864549 (Version 1)
Quarter: 2015Q1

REPORT INFORMATION
  Report Type: Spontaneous
  Country: US (occurrence: US)
  Receive Date: 20150223
  Receipt Date: 20150223
  Transmission Date: 20150721
  Serious: Yes (Other)
  Sender: FDA-Public Use
  Company Number: US-CELGENEUS-163-21880-12060419

PATIENT
  Age: 67 Year
  Sex: Female
  Weight: 95.34 kg

DRUGS (1)
  1. REVLIMID [Suspect]
     Active Substance: LENALIDOMIDE
     Indication: PLASMA CELL MYELOMA
     Dosage: 10 MILLIGRAM
     Route: 048
     Dates: start: 20120202, end: 201202

REACTIONS (6)
  - Confusional state [Unknown]
  - Fatigue [Unknown]
  - Oedema peripheral [Unknown]
  - Dizziness [Unknown]
  - Gastrointestinal infection [Unknown]
  - Diarrhoea [Unknown]

NARRATIVE: CASE EVENT DATE: 2012
